FAERS Safety Report 14325334 (Version 1)
Quarter: 2017Q4

REPORT INFORMATION
  Report Type: Spontaneous
  Country: US (occurrence: US)
  Receive Date: 20171223
  Receipt Date: 20171223
  Transmission Date: 20180321
  Serious: Yes (Hospitalization)
  Sender: FDA-Public Use
  Company Number: None

PATIENT
  Age: 69 Year
  Sex: Female
  Weight: 66.3 kg

DRUGS (1)
  1. ASPIRIN. [Suspect]
     Active Substance: ASPIRIN
     Dates: end: 20170707

REACTIONS (8)
  - Lung consolidation [None]
  - Upper respiratory tract infection [None]
  - Dyspnoea [None]
  - Nasopharyngitis [None]
  - Pneumonia [None]
  - Cough [None]
  - Fatigue [None]
  - Increased bronchial secretion [None]

NARRATIVE: CASE EVENT DATE: 20170707
